FAERS Safety Report 11435169 (Version 6)
Quarter: 2016Q3

REPORT INFORMATION
  Report Type: Report from Study
  Country: DE (occurrence: DE)
  Receive Date: 20150831
  Receipt Date: 20160728
  Transmission Date: 20161109
  Serious: Yes (Hospitalization)
  Sender: FDA-Public Use
  Company Number: DE-ASTRAZENECA-2015SE81868

PATIENT
  Age: 22 Year
  Sex: Female
  Weight: 53 kg

DRUGS (5)
  1. DAPAGLIFLOZIN [Suspect]
     Active Substance: DAPAGLIFLOZIN
     Indication: TYPE 1 DIABETES MELLITUS
     Dosage: 10 MG DAILY (2 TABLETS)
     Route: 048
     Dates: start: 20150728, end: 20150821
  2. GLUCOSE [Concomitant]
     Active Substance: DEXTROSE
     Route: 042
     Dates: start: 20151022, end: 20151025
  3. LEVEMIR [Suspect]
     Active Substance: INSULIN DETEMIR
     Dosage: 27IE
     Route: 058
     Dates: start: 20140806, end: 20150821
  4. QLAIRA [Concomitant]
     Active Substance: DIENOGEST\ESTRADIOL VALERATE
     Dosage: 1 TABLET
     Route: 065
     Dates: start: 20130101
  5. NOVORAPID [Suspect]
     Active Substance: INSULIN ASPART
     Dosage: 17IE
     Route: 058
     Dates: start: 20130111, end: 20150821

REACTIONS (2)
  - Ketoacidosis [Recovered/Resolved]
  - Liver function test increased [Recovered/Resolved]

NARRATIVE: CASE EVENT DATE: 20150822
